FAERS Safety Report 5857132-0 (Version None)
Quarter: 2008Q3

REPORT INFORMATION
  Report Type: 
  Country: None (occurrence: None)
  Receive Date: 20080825
  Receipt Date: 20080811
  Transmission Date: 20090109
  Serious: Yes (Hospitalization)
  Sender: FDA-Public Use
  Company Number: GB-ELI_LILLY_AND_COMPANY-GB200803000832

PATIENT
  Weight: 2.18 kg

DRUGS (3)
  1. FLUOXETINE [Suspect]
     Indication: DEPRESSION
     Dosage: 20 MG, DAILY (1/D)
     Route: 064
     Dates: end: 20070813
  2. FLUOXETINE [Suspect]
     Dosage: 20 MG, DAILY (1/D)
     Route: 063
     Dates: start: 20070101
  3. SYTRON [Concomitant]
     Indication: IRON DEFICIENCY ANAEMIA
     Dosage: 10 ML, UNK
     Route: 063
     Dates: start: 20070919, end: 20071020

REACTIONS (4)
  - DRUG EXPOSURE DURING PREGNANCY [None]
  - DRUG EXPOSURE VIA BREAST MILK [None]
  - SMALL FOR DATES BABY [None]
  - WEIGHT GAIN POOR [None]
